FAERS Safety Report 6666719-7 (Version None)
Quarter: 2010Q2

REPORT INFORMATION
  Report Type: 
  Country: None (occurrence: None)
  Receive Date: 20100402
  Receipt Date: 20100402
  Transmission Date: 20101027
  Serious: Yes (Other)
  Sender: FDA-Public Use
  Company Number: None

PATIENT
  Sex: Female
  Weight: 61.6892 kg

DRUGS (2)
  1. METFORMIN HCL [Suspect]
     Indication: POLYCYSTIC OVARIES
     Dosage: 750MG ONE QD PO
     Route: 048
     Dates: start: 20060101
  2. METFORMIN HCL [Concomitant]

REACTIONS (3)
  - BRADYCARDIA [None]
  - FATIGUE [None]
  - TEMPERATURE INTOLERANCE [None]
